FAERS Safety Report 26203719 (Version 1)
Quarter: 2025Q4

REPORT INFORMATION
  Report Type: Spontaneous
  Country: US (occurrence: US)
  Receive Date: 20251226
  Receipt Date: 20251226
  Transmission Date: 20260117
  Serious: Yes (Hospitalization)
  Sender: AMGEN
  Company Number: US-AMGEN-USASP2025250982

PATIENT
  Age: 80 Year
  Sex: Male

DRUGS (4)
  1. PREDNISONE [Suspect]
     Active Substance: PREDNISONE
     Indication: Eye infection syphilitic
     Dosage: UNK (SLOW TAPER)
     Route: 048
  2. PENICILLIN [Concomitant]
     Active Substance: PENICILLIN
     Indication: Eye infection syphilitic
     Dosage: IN BOTH EYE
     Route: 040
  3. PREDNISOLONE [Concomitant]
     Active Substance: PREDNISOLONE
     Indication: Eye infection syphilitic
     Dosage: IN BOTH EYE
     Route: 061
  4. CYCLOPENTOLATE [Concomitant]
     Active Substance: CYCLOPENTOLATE
     Indication: Eye infection syphilitic
     Dosage: IN BOTH EYE

REACTIONS (4)
  - Tractional retinal detachment [Unknown]
  - Macular fibrosis [Unknown]
  - Cystoid macular oedema [Unknown]
  - Off label use [Unknown]
